FAERS Safety Report 5655354-5 (Version None)
Quarter: 2008Q1

REPORT INFORMATION
  Report Type: 
  Country: None (occurrence: None)
  Receive Date: 20080307
  Receipt Date: 20080305
  Transmission Date: 20080703
  Serious: Yes (Other)
  Sender: FDA-Public Use
  Company Number: GR-ASTRAZENECA-2008SE01237

PATIENT
  Age: 55 Year
  Sex: Female

DRUGS (3)
  1. LOSEC I.V. [Suspect]
     Indication: GASTROOESOPHAGEAL REFLUX DISEASE
     Route: 048
     Dates: start: 20020101
  2. LAPRAZOL [Suspect]
     Indication: GASTROOESOPHAGEAL REFLUX DISEASE
     Route: 048
     Dates: start: 20020101
  3. ZURCAZOL [Suspect]
     Indication: GASTROOESOPHAGEAL REFLUX DISEASE
     Route: 048
     Dates: start: 20020101

REACTIONS (6)
  - CONSTIPATION [None]
  - DEPRESSION [None]
  - HYPERCHOLESTEROLAEMIA [None]
  - INSOMNIA [None]
  - PRURITUS [None]
  - VISION BLURRED [None]
